FAERS Safety Report 5807558-6 (Version None)
Quarter: 2008Q3

REPORT INFORMATION
  Report Type: 
  Country: None (occurrence: None)
  Receive Date: 20080709
  Receipt Date: 20080709
  Transmission Date: 20090109
  Serious: No
  Sender: FDA-Public Use
  Company Number: None

PATIENT
  Age: 50 Year
  Sex: Male

DRUGS (1)
  1. ISONIAZID [Suspect]
     Dosage: 300 MG EVERY DAY PO
     Route: 048
     Dates: start: 20071026, end: 20080215

REACTIONS (1)
  - HEPATITIS [None]
